FAERS Safety Report 5711945-4 (Version None)
Quarter: 2008Q2

REPORT INFORMATION
  Report Type: 
  Country: None (occurrence: None)
  Receive Date: 20080421
  Receipt Date: 20080409
  Transmission Date: 20081010
  Serious: Yes (Other)
  Sender: FDA-Public Use
  Company Number: CA-ELI_LILLY_AND_COMPANY-CA200804003104

PATIENT
  Age: 35 Year
  Sex: Female

DRUGS (3)
  1. STRATTERA [Suspect]
     Dosage: 25 MG, UNK
  2. STRATTERA [Suspect]
     Dosage: 40 MG, UNK
  3. METHADONE HCL [Concomitant]

REACTIONS (1)
  - TACHYCARDIA [None]
